FAERS Safety Report 8293416-7 (Version None)
Quarter: 2012Q2

REPORT INFORMATION
  Report Type: 
  Country: None (occurrence: None)
  Receive Date: 20120417
  Receipt Date: 20111212
  Transmission Date: 20120825
  Serious: No
  Sender: FDA-Public Use
  Company Number: US-ASTRAZENECA-2011SE47894

PATIENT
  Age: 81 Year
  Sex: Female

DRUGS (2)
  1. NEXIUM [Suspect]
     Dosage: DAILY
     Route: 048
  2. NEXIUM [Suspect]
     Dosage: TWO PER DAY
     Route: 048

REACTIONS (5)
  - TENDONITIS [None]
  - INCORRECT DOSE ADMINISTERED [None]
  - GASTROOESOPHAGEAL REFLUX DISEASE [None]
  - GAIT DISTURBANCE [None]
  - INGROWING NAIL [None]
